FAERS Safety Report 15156895 (Version 1)
Quarter: 2018Q3

REPORT INFORMATION
  Report Type: Spontaneous
  Country: FR (occurrence: FR)
  Receive Date: 20180718
  Receipt Date: 20180718
  Transmission Date: 20181010
  Serious: Yes (Hospitalization)
  Sender: FDA-Public Use
  Company Number: FR-ROCHE-2155391

PATIENT
  Age: 86 Year
  Sex: Female
  Weight: 43 kg

DRUGS (11)
  1. ATORVASTATINE [Concomitant]
     Active Substance: ATORVASTATIN
     Route: 065
  2. KARDEGIC [Concomitant]
     Active Substance: ASPIRIN DL-LYSINE
     Route: 065
  3. SPECIAFOLDINE [Concomitant]
     Active Substance: FOLIC ACID
     Route: 065
  4. GAZYVARO [Suspect]
     Active Substance: OBINUTUZUMAB
     Indication: CHRONIC LYMPHOCYTIC LEUKAEMIA
     Route: 042
     Dates: start: 20180611, end: 20180611
  5. VITAMINE C [Concomitant]
     Active Substance: ASCORBIC ACID
     Route: 065
  6. NEBIVOLOL. [Concomitant]
     Active Substance: NEBIVOLOL
     Route: 065
  7. RUBOZINC [Concomitant]
     Active Substance: ZINC GLUCONATE
     Route: 065
  8. PANTOPRAZOLE [Concomitant]
     Active Substance: PANTOPRAZOLE
     Route: 065
  9. CHLORAMINOPHENE [Suspect]
     Active Substance: CHLORAMBUCIL
     Indication: CHRONIC LYMPHOCYTIC LEUKAEMIA
     Route: 048
     Dates: start: 20180611
  10. DOLENIO [Concomitant]
     Active Substance: GLUCOSAMINE
     Route: 065
  11. FUMAFER [Concomitant]
     Active Substance: FERROUS FUMARATE
     Route: 065

REACTIONS (1)
  - Generalised tonic-clonic seizure [Recovered/Resolved]

NARRATIVE: CASE EVENT DATE: 20180613
